FAERS Safety Report 8778407 (Version 1)
Quarter: 2012Q4

REPORT INFORMATION
  Report Type: 
  Country: US (occurrence: US)
  Receive Date: 20120912
  Receipt Date: 20120912
  Transmission Date: 20130627
  Serious: Yes (Other)
  Sender: FDA-Public Use
  Company Number: US-GLAXOSMITHKLINE-A0992171A

PATIENT
  Age: 32 Year
  Sex: Female

DRUGS (2)
  1. LAMOTRIGINE [Suspect]
     Indication: EPILEPSY
     Dosage: 200MG Twice per day
     Route: 048
     Dates: start: 201204, end: 201205
  2. KLONOPIN [Concomitant]

REACTIONS (2)
  - Grand mal convulsion [Recovered/Resolved]
  - Convulsion [Recovered/Resolved]
